FAERS Safety Report 5624215-X (Version None)
Quarter: 2008Q1

REPORT INFORMATION
  Report Type: 
  Country: None (occurrence: None)
  Receive Date: 20080117
  Receipt Date: 20070509
  Transmission Date: 20080703
  Serious: Yes (Hospitalization)
  Sender: FDA-Public Use
  Company Number: 496606

PATIENT
  Age: 18 Month
  Sex: Male

DRUGS (1)
  1. ROCEPHIN [Suspect]
     Indication: EAR INFECTION
     Dosage: 1 DOSE FORM 1 PER DAY
     Dates: start: 20050405, end: 20070331

REACTIONS (3)
  - EAR INFECTION [None]
  - HAEMOLYTIC ANAEMIA [None]
  - SPEECH DISORDER [None]
